FAERS Safety Report 24595214 (Version 1)
Quarter: 2024Q4

REPORT INFORMATION
  Report Type: Report from Study
  Country: CN (occurrence: CN)
  Receive Date: 20241108
  Receipt Date: 20241108
  Transmission Date: 20250115
  Serious: Yes (Death, Life-Threatening, Hospitalization, Other)
  Sender: JOHNSON AND JOHNSON
  Company Number: CN-JNJFOC-20241109640

PATIENT
  Age: 78 Year
  Sex: Male
  Weight: 55 kg

DRUGS (10)
  1. ABIRATERONE ACETATE [Suspect]
     Active Substance: ABIRATERONE ACETATE
     Indication: Prostate cancer metastatic
     Route: 048
     Dates: start: 20210330, end: 20210526
  2. PRUXELUTAMIDE [Suspect]
     Active Substance: PRUXELUTAMIDE
     Indication: Prostate cancer metastatic
     Route: 048
     Dates: start: 20210330, end: 20210526
  3. PREDNISOLONE ACETATE [Suspect]
     Active Substance: PREDNISOLONE ACETATE
     Indication: Prophylaxis
     Route: 048
     Dates: start: 20210330, end: 20210526
  4. OMEPRAZOLE [Concomitant]
     Active Substance: OMEPRAZOLE
     Indication: Chronic gastritis
     Route: 048
     Dates: start: 202104, end: 20210531
  5. AMLODIPINE BESYLATE [Concomitant]
     Active Substance: AMLODIPINE BESYLATE
     Indication: Hypertension
     Route: 048
     Dates: start: 202006, end: 20210531
  6. CELECOXIB [Concomitant]
     Active Substance: CELECOXIB
     Indication: Flank pain
     Route: 048
     Dates: start: 20210406, end: 20210531
  7. NICERGOLINE [Concomitant]
     Active Substance: NICERGOLINE
     Indication: Dizziness
     Route: 048
     Dates: start: 20210410, end: 20210531
  8. DICLOFENAC SODIUM [Concomitant]
     Active Substance: DICLOFENAC SODIUM
     Indication: Flank pain
     Route: 048
     Dates: start: 20210427, end: 20210531
  9. PAMIDRONATE DISODIUM AND GLUCOSE [Concomitant]
     Indication: Flank pain
     Route: 042
  10. MOSAPRIDE [Concomitant]
     Active Substance: MOSAPRIDE
     Indication: Chronic gastritis
     Route: 048
     Dates: start: 20210510, end: 20210531

REACTIONS (14)
  - Hypokalaemia [Fatal]
  - Death [Fatal]
  - Craniofacial fracture [Unknown]
  - Aspartate aminotransferase increased [Unknown]
  - Hyperglycaemia [Unknown]
  - Decreased appetite [Unknown]
  - Orbital swelling [Unknown]
  - Weight decreased [Unknown]
  - Proteinuria [Unknown]
  - Platelet count decreased [Unknown]
  - Vomiting [Unknown]
  - Hypoalbuminaemia [Unknown]
  - Hypocalcaemia [Unknown]
  - Anaemia [Unknown]

NARRATIVE: CASE EVENT DATE: 20210427
